FAERS Safety Report 25260263 (Version 1)
Quarter: 2025Q2

REPORT INFORMATION
  Report Type: Spontaneous
  Country: US (occurrence: None)
  Receive Date: 20250501
  Receipt Date: 20250501
  Transmission Date: 20250717
  Serious: Yes (Hospitalization)
  Sender: FDA-CTU
  Company Number: None

PATIENT
  Age: 87 Year
  Sex: Male
  Weight: 78 kg

DRUGS (2)
  1. FENTANYL TRANSDERMAL SYSTEM [Suspect]
     Active Substance: FENTANYL
     Indication: Pain
     Route: 050
  2. HYDROMORPHONE HYDROCHLORIDE [Suspect]
     Active Substance: HYDROMORPHONE HYDROCHLORIDE
     Route: 048

REACTIONS (10)
  - Delirium [None]
  - Fall [None]
  - Somnolence [None]
  - Asthenia [None]
  - Asthenia [None]
  - Sedation [None]
  - Disturbance in attention [None]
  - Speech disorder [None]
  - Aphasia [None]
  - Muscular weakness [None]

NARRATIVE: CASE EVENT DATE: 20250302
